FAERS Safety Report 20010603 (Version 1)
Quarter: 2021Q4

REPORT INFORMATION
  Report Type: Spontaneous
  Country: US (occurrence: US)
  Receive Date: 20211028
  Receipt Date: 20211028
  Transmission Date: 20220303
  Serious: No
  Sender: FDA-Public Use
  Company Number: US-BRISTOL-MYERS SQUIBB COMPANY-BMS-2021-109064

PATIENT
  Age: 71 Year
  Sex: Female
  Weight: 112.93 kg

DRUGS (2)
  1. ELIQUIS [Suspect]
     Active Substance: APIXABAN
     Indication: Embolism venous
     Dosage: 5 MILLIGRAM, BID
     Route: 048
     Dates: start: 20210914, end: 20210920
  2. LOSARTAN [Concomitant]
     Active Substance: LOSARTAN
     Indication: Blood pressure measurement
     Dosage: 25 MG, DAILY
     Route: 065

REACTIONS (8)
  - Rash pruritic [Recovering/Resolving]
  - Vision blurred [Recovered/Resolved]
  - Eye pain [Recovering/Resolving]
  - Ocular hyperaemia [Unknown]
  - Animal scratch [Recovering/Resolving]
  - Wound haemorrhage [Unknown]
  - Impaired healing [Unknown]
  - Fungal infection [Unknown]

NARRATIVE: CASE EVENT DATE: 20210901
